FAERS Safety Report 12248240 (Version 1)
Quarter: 2016Q2

REPORT INFORMATION
  Report Type: Spontaneous
  Country: US (occurrence: None)
  Receive Date: 20160407
  Receipt Date: 20160407
  Transmission Date: 20160815
  Serious: No
  Sender: FDA-Public Use
  Company Number: None

PATIENT
  Age: 76 Year
  Sex: Female

DRUGS (6)
  1. LISIN/HCTZ [Concomitant]
  2. XGEVA [Concomitant]
     Active Substance: DENOSUMAB
  3. AMLODIPINE [Concomitant]
     Active Substance: AMLODIPINE BESYLATE
  4. INLYTA [Suspect]
     Active Substance: AXITINIB
     Indication: RENAL CANCER
     Route: 048
     Dates: start: 20150121, end: 201604
  5. LEVOTHYROXINE. [Concomitant]
     Active Substance: LEVOTHYROXINE
  6. NEXAVAR [Concomitant]
     Active Substance: SORAFENIB

REACTIONS (1)
  - Unevaluable event [None]

NARRATIVE: CASE EVENT DATE: 201604
